FAERS Safety Report 7640263-2 (Version None)
Quarter: 2011Q3

REPORT INFORMATION
  Report Type: 
  Country: None (occurrence: None)
  Receive Date: 20110728
  Receipt Date: 20110719
  Transmission Date: 20111222
  Serious: Yes (Hospitalization, Other)
  Sender: FDA-Public Use
  Company Number: US-BAYER-2011-018376

PATIENT
  Age: 22 Year
  Sex: Female
  Weight: 56.689 kg

DRUGS (3)
  1. YAZ [Suspect]
     Indication: ACNE
  2. YAZ [Suspect]
     Indication: CONTRACEPTION
     Dosage: UNK
     Dates: start: 20081024, end: 20090306
  3. IBUPROFEN [Concomitant]
     Dosage: 600 MG, PRN

REACTIONS (1)
  - PULMONARY EMBOLISM [None]
